FAERS Safety Report 8103582-1 (Version None)
Quarter: 2012Q1

REPORT INFORMATION
  Report Type: 
  Country: None (occurrence: None)
  Receive Date: 20120201
  Receipt Date: 20120126
  Transmission Date: 20120608
  Serious: Yes (Other)
  Sender: FDA-Public Use
  Company Number: US-ROCHE-798745

PATIENT
  Sex: Male
  Weight: 108.96 kg

DRUGS (2)
  1. ACCUTANE [Suspect]
     Indication: ACNE
     Route: 065
     Dates: start: 19850320, end: 19850612
  2. ACCUTANE [Suspect]
     Route: 065
     Dates: start: 19861101, end: 19870107

REACTIONS (5)
  - DEPRESSION [None]
  - IRRITABLE BOWEL SYNDROME [None]
  - COLITIS ULCERATIVE [None]
  - INFLAMMATORY BOWEL DISEASE [None]
  - INJURY [None]
